FAERS Safety Report 8963715 (Version 3)
Quarter: 2013Q1

REPORT INFORMATION
  Report Type: Spontaneous
  Country: GB (occurrence: GB)
  Receive Date: 20121214
  Receipt Date: 20130211
  Transmission Date: 20140127
  Serious: Yes (Hospitalization, Other)
  Sender: FDA-Public Use
  Company Number: PHFR2012GB005122

PATIENT
  Age: 56 Year
  Sex: Male

DRUGS (6)
  1. CLOZARIL [Suspect]
     Indication: SCHIZOPHRENIA
     Route: 048
     Dates: start: 20090804
  2. CLOZARIL [Suspect]
     Dosage: 600 MG, YEAR AGO
     Route: 048
  3. SERTRALINE [Concomitant]
     Indication: ANXIETY
     Dosage: 150 MG, UNK
     Route: 048
  4. DIAZEPAM [Concomitant]
     Dosage: 5-10 MG, LONG TERM
     Route: 048
  5. PROCYCLIDINE [Concomitant]
     Dosage: 10 MG, UNK
     Route: 048
  6. OMEPRAZOLE [Concomitant]
     Dosage: 20 MG, UNK

REACTIONS (7)
  - Sepsis [Recovered/Resolved]
  - Lower respiratory tract infection [Recovered/Resolved]
  - Urinary tract infection [Recovered/Resolved]
  - White blood cell count increased [Recovered/Resolved]
  - Neutrophil count increased [Recovered/Resolved]
  - Platelet count increased [Unknown]
  - Eosinophil count increased [Unknown]
